FAERS Safety Report 11494432 (Version 2)
Quarter: 2016Q1

REPORT INFORMATION
  Report Type: Report from Study
  Country: IT (occurrence: IT)
  Receive Date: 20150911
  Receipt Date: 20160301
  Transmission Date: 20160525
  Serious: Yes (Hospitalization)
  Sender: FDA-Public Use
  Company Number: PHHO2015IT013945

PATIENT
  Age: 74 Year
  Sex: Male
  Weight: 89 kg

DRUGS (8)
  1. LASIX [Concomitant]
     Active Substance: FUROSEMIDE
     Indication: HYPERTENSION
     Dosage: UNK
     Route: 048
     Dates: start: 20140501
  2. GIANT [Concomitant]
     Active Substance: AMLODIPINE BESYLATE\OLMESARTAN MEDOXOMIL
     Indication: HYPERTENSION
     Dosage: UNK
     Route: 065
     Dates: start: 20140501
  3. LANSOPRAZOLE. [Concomitant]
     Active Substance: LANSOPRAZOLE
     Indication: PROPHYLAXIS
     Route: 065
  4. LEVOFLOXACIN. [Concomitant]
     Active Substance: LEVOFLOXACIN
     Indication: INFECTION
     Dosage: 500 DAILY DOSE
     Route: 048
     Dates: start: 20150821, end: 20150827
  5. AFINITOR [Suspect]
     Active Substance: EVEROLIMUS
     Indication: RENAL CELL CARCINOMA
     Dosage: 10 MG, QD
     Route: 048
     Dates: start: 20150730
  6. GOLTOR [Concomitant]
     Indication: DYSLIPIDAEMIA
     Dosage: 10 DAILY DOSE
     Route: 048
     Dates: start: 20140501
  7. DILATREND [Concomitant]
     Active Substance: CARVEDILOL
     Indication: HYPERTENSION
     Dosage: 25 DAILY DOSE
     Route: 048
     Dates: start: 20140501
  8. TERAPROST [Concomitant]
     Indication: BENIGN PROSTATIC HYPERPLASIA
     Dosage: UNK
     Route: 065
     Dates: start: 20140501

REACTIONS (1)
  - Haematuria [Recovered/Resolved]

NARRATIVE: CASE EVENT DATE: 20150827
